FAERS Safety Report 6793630-3 (Version None)
Quarter: 2010Q2

REPORT INFORMATION
  Report Type: 
  Country: None (occurrence: None)
  Receive Date: 20100624
  Receipt Date: 20090220
  Transmission Date: 20101027
  Serious: No
  Sender: FDA-Public Use
  Company Number: US-PFIZER INC-2009150787

PATIENT
  Sex: Male
  Weight: 81.2 kg

DRUGS (5)
  1. SUTENT [Suspect]
     Indication: RENAL CELL CARCINOMA
     Dosage: 50 MG, UNK
  2. COREG [Concomitant]
     Dosage: UNK
  3. LISINOPRIL [Concomitant]
     Dosage: UNK
  4. OS-CAL [Concomitant]
     Dosage: UNK
  5. ZOMETA [Concomitant]
     Indication: BONE DISORDER
     Dosage: UNK

REACTIONS (7)
  - HYPERCHLORHYDRIA [None]
  - HYPERTENSION [None]
  - HYPOAESTHESIA [None]
  - OEDEMA PERIPHERAL [None]
  - PAIN [None]
  - PALPITATIONS [None]
  - WHITE BLOOD CELL COUNT DECREASED [None]
